FAERS Safety Report 10482486 (Version 1)
Quarter: 2014Q3

REPORT INFORMATION
  Report Type: Spontaneous
  Country: US (occurrence: US)
  Receive Date: 20140929
  Receipt Date: 20140929
  Transmission Date: 20150326
  Serious: Yes (Hospitalization)
  Sender: FDA-Public Use
  Company Number: US-ABBVIE-14K-163-1288010-00

PATIENT
  Age: 30 Year
  Sex: Male
  Weight: 52.21 kg

DRUGS (4)
  1. HUMIRA [Suspect]
     Active Substance: ADALIMUMAB
     Dates: start: 201409, end: 201409
  2. HUMIRA [Suspect]
     Active Substance: ADALIMUMAB
     Indication: CROHN^S DISEASE
     Dates: start: 201208, end: 201403
  3. HUMIRA [Suspect]
     Active Substance: ADALIMUMAB
     Dates: start: 20140916, end: 20140916
  4. HUMIRA [Suspect]
     Active Substance: ADALIMUMAB
     Dates: start: 2014

REACTIONS (9)
  - Asthenia [Recovering/Resolving]
  - Blood urine present [Recovering/Resolving]
  - Wrong technique in drug usage process [Unknown]
  - Abasia [Recovering/Resolving]
  - Crohn^s disease [Recovering/Resolving]
  - Hiatus hernia [Recovering/Resolving]
  - Haematochezia [Not Recovered/Not Resolved]
  - Intestinal ulcer [Recovering/Resolving]
  - Drug dose omission [Unknown]

NARRATIVE: CASE EVENT DATE: 201409
